FAERS Safety Report 19184939 (Version 1)
Quarter: 2021Q2

REPORT INFORMATION
  Report Type: Spontaneous
  Country: CN (occurrence: CN)
  Receive Date: 20210427
  Receipt Date: 20210427
  Transmission Date: 20210717
  Serious: Yes (Other)
  Sender: FDA-Public Use
  Company Number: CN-BAXTER-2021BAX008614

PATIENT
  Age: 1 Year
  Weight: 8 kg

DRUGS (4)
  1. HOLOXAN [Suspect]
     Active Substance: IFOSFAMIDE
     Dosage: DOSE RE?INTRODUCED; HOLOXAN + 5% GLUCOSE
     Route: 041
     Dates: start: 202104
  2. HOLOXAN [Suspect]
     Active Substance: IFOSFAMIDE
     Indication: EXTRA-OSSEOUS EWING^S SARCOMA
     Dosage: HOLOXAN 0.7 G + 5% GLUCOSE 100 ML
     Route: 041
     Dates: start: 20210327, end: 20210331
  3. 5% GLUCOSE  INJECTION [Suspect]
     Active Substance: DEXTROSE
     Indication: MEDICATION DILUTION
     Dosage: HOLOXAN 0.7 G + 5% GLUCOSE 100 ML
     Route: 041
     Dates: start: 20210327, end: 20210331
  4. 5% GLUCOSE  INJECTION [Suspect]
     Active Substance: DEXTROSE
     Dosage: DOSE RE?INTRODUCED; HOLOXAN + 5% GLUCOSE
     Route: 041
     Dates: start: 202104

REACTIONS (2)
  - Neutrophil count decreased [Recovered/Resolved]
  - White blood cell count decreased [Recovered/Resolved]

NARRATIVE: CASE EVENT DATE: 20210329
